FAERS Safety Report 13439646 (Version 1)
Quarter: 2017Q2

REPORT INFORMATION
  Report Type: Spontaneous
  Country: GB (occurrence: GB)
  Receive Date: 20170413
  Receipt Date: 20170413
  Transmission Date: 20170830
  Serious: Yes (Hospitalization, Other)
  Sender: FDA-Public Use
  Company Number: GB-MYLANLABS-2017M1022435

PATIENT

DRUGS (13)
  1. PIPERACILLIN/TAZOBACTAM [Suspect]
     Active Substance: PIPERACILLIN SODIUM\TAZOBACTAM SODIUM
     Indication: PYREXIA
     Dosage: UNKNOWN.^PRESCRIBED FOR FOUR DAYS.
     Route: 042
     Dates: start: 20170224, end: 20170227
  2. IBUPROFEN. [Concomitant]
     Active Substance: IBUPROFEN
     Dosage: DOSE UNKNOWN.
  3. LEVETIRACETAM. [Concomitant]
     Active Substance: LEVETIRACETAM
     Indication: SEIZURE
     Dosage: UNTIL STOPPED.
     Dates: start: 20170113
  4. FLUTICASONE PROPIONATE. [Concomitant]
     Active Substance: FLUTICASONE PROPIONATE
     Dosage: 250 ?G, BID
     Route: 055
  5. PHENYTOIN SODIUM. [Suspect]
     Active Substance: PHENYTOIN SODIUM
     Indication: SEIZURE
     Dosage: REDUCED BY 50MG PER WEEK FROM 13.1.2017 UNTIL STOPPED.
     Dates: start: 20170105
  6. CODEINE [Concomitant]
     Active Substance: CODEINE
     Dosage: UNK
  7. SALBUTAMOL [Concomitant]
     Active Substance: ALBUTEROL
     Dosage: 100 ?G, UNK
     Route: 055
  8. ASPIRIN. [Concomitant]
     Active Substance: ASPIRIN
     Dosage: UNK
     Dates: end: 20170105
  9. CEFTRIAXONE. [Concomitant]
     Active Substance: CEFTRIAXONE
     Dosage: PATIENT ONLY HAD 1 DOSE ON 27.02.2017
     Dates: start: 20170227, end: 20170227
  10. ENOXAPARIN SODIUM. [Concomitant]
     Active Substance: ENOXAPARIN SODIUM
     Dosage: UNK
     Dates: start: 20170108, end: 20170113
  11. PARACETAMOL [Concomitant]
     Active Substance: ACETAMINOPHEN
     Dosage: 4 TIMES A DAY.
  12. DEXAMETHASONE. [Concomitant]
     Active Substance: DEXAMETHASONE
     Dosage: 1 MG, QD
     Dates: start: 20170105
  13. LANSOPRAZOLE. [Concomitant]
     Active Substance: LANSOPRAZOLE
     Dosage: 30 MG, QD
     Dates: start: 20170109

REACTIONS (1)
  - Drug-induced liver injury [Recovered/Resolved]

NARRATIVE: CASE EVENT DATE: 20170224
